FAERS Safety Report 24741472 (Version 1)
Quarter: 2024Q4

REPORT INFORMATION
  Report Type: Spontaneous
  Country: US (occurrence: US)
  Receive Date: 20241217
  Receipt Date: 20241217
  Transmission Date: 20250115
  Serious: No
  Sender: AMNEAL
  Company Number: US-AMNEAL PHARMACEUTICALS-2023-AMRX-04328

PATIENT
  Sex: Female

DRUGS (5)
  1. DEXTROMETHORPHAN HYDROBROMIDE\GUAIFENESIN [Suspect]
     Active Substance: DEXTROMETHORPHAN HYDROBROMIDE\GUAIFENESIN
     Indication: Secretion discharge
     Dosage: 600 MG/30 MILLIGRAM, 1 CAPLET EVERY 12 HOURS DO NOT EXCEED 2-CAPLETS IN A 24-HOUR PERIOD
     Route: 048
     Dates: start: 20231109
  2. DEXTROMETHORPHAN HYDROBROMIDE\GUAIFENESIN [Suspect]
     Active Substance: DEXTROMETHORPHAN HYDROBROMIDE\GUAIFENESIN
     Dosage: 600 MG/30 MILLIGRAM, 1 CAPLET EVERY 12 HOURS DO NOT EXCEED 2-CAPLETS IN A 24-HOUR PERIOD
     Route: 048
     Dates: start: 20231109
  3. DEXTROMETHORPHAN HYDROBROMIDE\GUAIFENESIN [Suspect]
     Active Substance: DEXTROMETHORPHAN HYDROBROMIDE\GUAIFENESIN
     Dosage: 600 MG/30 MILLIGRAM, 1 CAPLET EVERY 12 HOURS DO NOT EXCEED 2-CAPLETS IN A 24-HOUR PERIOD
     Route: 048
     Dates: start: 20231109
  4. DEXTROMETHORPHAN HYDROBROMIDE\GUAIFENESIN [Suspect]
     Active Substance: DEXTROMETHORPHAN HYDROBROMIDE\GUAIFENESIN
     Dosage: 600 MG/30 MILLIGRAM, 1 CAPLET EVERY 12 HOURS DO NOT EXCEED 2-CAPLETS IN A 24-HOUR PERIOD
     Route: 048
     Dates: start: 20231109
  5. DEXTROMETHORPHAN HYDROBROMIDE\GUAIFENESIN [Suspect]
     Active Substance: DEXTROMETHORPHAN HYDROBROMIDE\GUAIFENESIN
     Dosage: 600 MG/30 MILLIGRAM, 1 CAPLET EVERY 12 HOURS DO NOT EXCEED 2-CAPLETS IN A 24-HOUR PERIOD
     Route: 048
     Dates: start: 20231109

REACTIONS (5)
  - Heart rate increased [Recovered/Resolved]
  - Asthenia [Recovered/Resolved]
  - Hyperhidrosis [Recovered/Resolved]
  - Loss of consciousness [Recovered/Resolved]
  - Contusion [Recovered/Resolved]

NARRATIVE: CASE EVENT DATE: 20231109
